FAERS Safety Report 9447922 (Version 2)
Quarter: 2013Q3

REPORT INFORMATION
  Report Type: Report from Study
  Country: US (occurrence: US)
  Receive Date: 20130808
  Receipt Date: 20130814
  Transmission Date: 20140515
  Serious: Yes (Death)
  Sender: FDA-Public Use
  Company Number: PHEH2013US016517

PATIENT
  Age: 49 Year
  Sex: Male

DRUGS (9)
  1. AFINITOR [Suspect]
     Indication: PANCREATIC CARCINOMA
     Dosage: 10 MG/DAY
     Route: 048
     Dates: start: 20130624
  2. GLUTAMINE [Concomitant]
  3. MELATONIN [Concomitant]
  4. METFORMIN [Concomitant]
  5. NEULASTA [Concomitant]
  6. PROTONEX [Concomitant]
  7. VITAMIN B [Concomitant]
  8. VIT D3 [Concomitant]
  9. CURCUMIN [Concomitant]

REACTIONS (2)
  - Pancreatic carcinoma [Fatal]
  - Malignant neoplasm progression [Fatal]
